FAERS Safety Report 24990550 (Version 1)
Quarter: 2025Q1

REPORT INFORMATION
  Report Type: Spontaneous
  Country: US (occurrence: None)
  Receive Date: 20250219
  Receipt Date: 20250219
  Transmission Date: 20250409
  Serious: Yes (Other)
  Sender: FDA-CTU
  Company Number: None

PATIENT
  Age: 12 Year
  Sex: Female
  Weight: 45 kg

DRUGS (4)
  1. AZITHROMYCIN [Suspect]
     Active Substance: AZITHROMYCIN
     Indication: Pneumonia
     Dosage: OTHER QUANTITY : 1 TABLESPOON(S);?FREQUENCY : DAILY;?
     Route: 048
     Dates: start: 20241104, end: 20241107
  2. CHILDREN CLARITIN ALLERGY [Concomitant]
     Active Substance: LORATADINE
  3. Children^s Flonase [Concomitant]
  4. GNC Children^s Multivitamin [Concomitant]

REACTIONS (5)
  - Dizziness [None]
  - Vision blurred [None]
  - Aura [None]
  - Loss of consciousness [None]
  - Aphasia [None]

NARRATIVE: CASE EVENT DATE: 20241105
